FAERS Safety Report 4784752-7 (Version None)
Quarter: 2005Q3

REPORT INFORMATION
  Report Type: 
  Country: None (occurrence: None)
  Receive Date: 20050930
  Receipt Date: 20050922
  Transmission Date: 20060218
  Serious: Yes (Hospitalization)
  Sender: FDA-Public Use
  Company Number: PHRM2005FR02542

PATIENT
  Age: 14 Year
  Sex: Male

DRUGS (2)
  1. MYFORTIC [Suspect]
     Indication: HEART AND LUNG TRANSPLANT
     Dosage: 720 MG, BID
     Route: 048
  2. NEORAL [Concomitant]
     Indication: HEART AND LUNG TRANSPLANT
     Route: 048

REACTIONS (2)
  - EOSINOPHILIA [None]
  - NEUTROPENIA [None]
